FAERS Safety Report 4551051-8 (Version None)
Quarter: 2005Q1

REPORT INFORMATION
  Report Type: 
  Country: None (occurrence: None)
  Receive Date: 20050113
  Receipt Date: 20041008
  Transmission Date: 20050727
  Serious: No
  Sender: FDA-Public Use
  Company Number: US-BRISTOL-MYERS SQUIBB COMPANY-12728036

PATIENT

DRUGS (1)
  1. DESYREL [Suspect]
     Route: 048

REACTIONS (2)
  - DRUG INEFFECTIVE [None]
  - MEDICATION ERROR [None]
